FAERS Safety Report 4589308-7 (Version None)
Quarter: 2005Q1

REPORT INFORMATION
  Report Type: 
  Country: None (occurrence: None)
  Receive Date: 20050216
  Receipt Date: 20050201
  Transmission Date: 20050727
  Serious: Yes (Other)
  Sender: FDA-Public Use
  Company Number: DSA_81195_2005

PATIENT
  Age: 52 Year
  Sex: Female
  Weight: 89.8122 kg

DRUGS (7)
  1. XYREM [Suspect]
     Dosage: 1.125 G ONCE PO
     Route: 048
     Dates: start: 20050121, end: 20050121
  2. FLORINEF [Concomitant]
  3. CORTEF [Concomitant]
  4. LEVOXYL [Concomitant]
  5. OXYCODONE HCL [Concomitant]
  6. CYTOMEL [Concomitant]
  7. MICARDIS [Concomitant]

REACTIONS (8)
  - CHEST DISCOMFORT [None]
  - DIPLEGIA [None]
  - EYE PAIN [None]
  - FIBROMYALGIA [None]
  - HANGOVER [None]
  - LOCKED-IN SYNDROME [None]
  - PAIN IN JAW [None]
  - PARALYSIS [None]
